FAERS Safety Report 13643859 (Version 2)
Quarter: 2017Q2

REPORT INFORMATION
  Report Type: Spontaneous
  Country: IN (occurrence: IN)
  Receive Date: 20170612
  Receipt Date: 20170619
  Transmission Date: 20170830
  Serious: Yes (Other)
  Sender: FDA-Public Use
  Company Number: IN-JNJFOC-20170608827

PATIENT
  Age: 65 Year
  Sex: Female

DRUGS (1)
  1. IXAROLA [Suspect]
     Active Substance: RIVAROXABAN
     Indication: ANGINA PECTORIS
     Route: 048
     Dates: start: 2016

REACTIONS (2)
  - Off label use [Unknown]
  - Nephrolithiasis [Unknown]

NARRATIVE: CASE EVENT DATE: 20170501
